FAERS Safety Report 24867376 (Version 1)
Quarter: 2025Q1

REPORT INFORMATION
  Report Type: Spontaneous
  Country: US (occurrence: US)
  Receive Date: 20250121
  Receipt Date: 20250121
  Transmission Date: 20250409
  Serious: No
  Sender: MERZ
  Company Number: US-MRZWEB-2025010000052

PATIENT

DRUGS (1)
  1. XEOMIN [Suspect]
     Active Substance: INCOBOTULINUMTOXINA
     Indication: Blepharospasm
     Dosage: 200 INTERNATIONAL UNIT

REACTIONS (2)
  - Therapeutic response decreased [Unknown]
  - Overdose [Unknown]
